FAERS Safety Report 6236333-6 (Version None)
Quarter: 2009Q2

REPORT INFORMATION
  Report Type: 
  Country: None (occurrence: None)
  Receive Date: 20090619
  Receipt Date: 20090608
  Transmission Date: 20091009
  Serious: Yes (Other)
  Sender: FDA-Public Use
  Company Number: US-ELI_LILLY_AND_COMPANY-US200602002241

PATIENT
  Sex: Female
  Weight: 95.238 kg

DRUGS (6)
  1. ZYPREXA [Suspect]
     Indication: DEPRESSION
     Dosage: 10 MG, UNKNOWN
     Route: 048
     Dates: start: 19960101
  2. ZYPREXA [Suspect]
     Dosage: 20 MG, UNKNOWN
     Route: 048
     Dates: end: 20000501
  3. DEPAKOTE [Concomitant]
     Dosage: UNK, UNKNOWN
     Dates: start: 19950101, end: 20000101
  4. PROZAC [Concomitant]
     Dosage: UNK, UNKNOWN
     Dates: start: 19990101, end: 20010101
  5. TRAZODONE HCL [Concomitant]
     Dosage: 50 MG, UNK
  6. SEROQUEL [Concomitant]

REACTIONS (9)
  - ASTHENIA [None]
  - BLOOD TRIGLYCERIDES INCREASED [None]
  - DRUG EXPOSURE DURING PREGNANCY [None]
  - FATIGUE [None]
  - HEPATITIS VIRAL [None]
  - HYPERTENSION [None]
  - HYPOAESTHESIA [None]
  - PRURITUS [None]
  - TYPE 2 DIABETES MELLITUS [None]
